FAERS Safety Report 9404050 (Version 1)
Quarter: 2013Q3

REPORT INFORMATION
  Report Type: Spontaneous
  Country: US (occurrence: None)
  Receive Date: 20130716
  Receipt Date: 20130716
  Transmission Date: 20140515
  Serious: Yes (Life-Threatening, Hospitalization)
  Sender: FDA-Public Use
  Company Number: None

PATIENT
  Age: 42 Year
  Sex: Male
  Weight: 99.79 kg

DRUGS (5)
  1. PRILOSEC [Suspect]
     Indication: ABDOMINAL PAIN UPPER
     Dates: start: 20130611, end: 20130621
  2. PRILOSEC [Suspect]
     Indication: ANXIETY
     Dates: start: 20130611, end: 20130621
  3. PRILOSEC [Suspect]
     Indication: DIARRHOEA
     Dates: start: 20130611, end: 20130621
  4. CITALOPRAM [Concomitant]
  5. IBUPROFEN [Concomitant]

REACTIONS (17)
  - Drug interaction [None]
  - Agitation [None]
  - Insomnia [None]
  - Hyperhidrosis [None]
  - Anxiety [None]
  - Thinking abnormal [None]
  - Abdominal pain upper [None]
  - Diarrhoea [None]
  - Nausea [None]
  - Loss of consciousness [None]
  - Tremor [None]
  - Tremor [None]
  - Headache [None]
  - Serotonin syndrome [None]
  - Skin warm [None]
  - Hallucination [None]
  - Drug ineffective [None]
